FAERS Safety Report 9981432 (Version 1)
Quarter: 2014Q1

REPORT INFORMATION
  Report Type: Report from Study
  Country: BW (occurrence: BW)
  Receive Date: 20140307
  Receipt Date: 20140307
  Transmission Date: 20141002
  Serious: Yes (Death)
  Sender: FDA-Public Use
  Company Number: BW-BRISTOL-MYERS SQUIBB COMPANY-20386363

PATIENT
  Sex: Female

DRUGS (3)
  1. STOCRIN [Suspect]
     Route: 064
     Dates: start: 20130103, end: 20130313
  2. TRUVADA [Suspect]
     Route: 064
     Dates: start: 20130103
  3. KALETRA [Suspect]
     Indication: HIV INFECTION
     Route: 064
     Dates: start: 20130313

REACTIONS (2)
  - Stillbirth [Fatal]
  - Foetal exposure during pregnancy [Unknown]
